FAERS Safety Report 14773755 (Version 1)
Quarter: 2018Q2

REPORT INFORMATION
  Report Type: Spontaneous
  Country: ZA (occurrence: ZA)
  Receive Date: 20180418
  Receipt Date: 20180418
  Transmission Date: 20180711
  Serious: Yes (Hospitalization, Other)
  Sender: FDA-Public Use
  Company Number: ZA-ELI_LILLY_AND_COMPANY-ZA201804003551

PATIENT
  Age: 71 Year
  Sex: Female
  Weight: 68 kg

DRUGS (3)
  1. NOVORAPID [Suspect]
     Active Substance: INSULIN ASPART
     Indication: PRODUCT USED FOR UNKNOWN INDICATION
     Dosage: 10 IU, TID
     Route: 065
     Dates: start: 201711
  2. HUMULIN 70/30 [Suspect]
     Active Substance: INSULIN HUMAN
     Indication: TYPE 2 DIABETES MELLITUS
     Dosage: UNK, BID
     Route: 058
     Dates: start: 2003, end: 201711
  3. HUMULIN N [Suspect]
     Active Substance: INSULIN HUMAN
     Indication: TYPE 2 DIABETES MELLITUS
     Dosage: 40 IU, EACH EVENING
     Route: 058
     Dates: start: 201711

REACTIONS (5)
  - Hepatic cirrhosis [Unknown]
  - Blood glucose abnormal [Unknown]
  - Cholelithiasis [Unknown]
  - Bile duct obstruction [Unknown]
  - Hepatic steatosis [Unknown]

NARRATIVE: CASE EVENT DATE: 201803
